FAERS Safety Report 6847507-5 (Version None)
Quarter: 2010Q3

REPORT INFORMATION
  Report Type: 
  Country: None (occurrence: None)
  Receive Date: 20100716
  Receipt Date: 20100615
  Transmission Date: 20110219
  Serious: No
  Sender: FDA-Public Use
  Company Number: US-BAYER-201017042BCC

PATIENT
  Age: 67 Year
  Sex: Female
  Weight: 77 kg

DRUGS (6)
  1. ALEVE (CAPLET) [Suspect]
     Indication: ARTHRALGIA
     Dosage: TOOK 1 TO 2 ALEVE TABLETS / BOTTLE COUNT 100S
     Route: 048
     Dates: start: 20100101
  2. ALEVE (CAPLET) [Suspect]
     Dosage: BOTTLE COUNT 200CT
     Route: 048
     Dates: start: 20100101
  3. PEPCID [Concomitant]
     Route: 065
  4. ZESTRIL [Concomitant]
     Route: 065
  5. UNKNOWN B12 VITAMIN [Concomitant]
     Route: 065
  6. NATURE MADE CALCIUM AND MAGNESIUM [Concomitant]
     Route: 065

REACTIONS (2)
  - ABDOMINAL PAIN [None]
  - DIARRHOEA [None]
